FAERS Safety Report 5405429-0 (Version None)
Quarter: 2007Q3

REPORT INFORMATION
  Report Type: 
  Country: None (occurrence: None)
  Receive Date: 20070803
  Receipt Date: 20070724
  Transmission Date: 20080115
  Serious: Yes (Other)
  Sender: FDA-Public Use
  Company Number: FR-PFIZER INC-2007054266

PATIENT
  Sex: Male
  Weight: 90 kg

DRUGS (2)
  1. CADUET [Suspect]
     Indication: HYPERCHOLESTEROLAEMIA
     Dosage: TEXT:5/10MG-FREQ:DAILY
     Route: 048
     Dates: start: 20070611, end: 20070701
  2. CADUET [Suspect]
     Indication: HYPERTENSION

REACTIONS (2)
  - HEPATITIS [None]
  - TRANSAMINASES INCREASED [None]
